FAERS Safety Report 11189507 (Version 4)
Quarter: 2018Q3

REPORT INFORMATION
  Report Type: Spontaneous
  Country: US (occurrence: US)
  Receive Date: 20150615
  Receipt Date: 20180921
  Transmission Date: 20181010
  Serious: Yes (Hospitalization, Other)
  Sender: FDA-Public Use
  Company Number: US-DSJP-DSU-2014-131782

PATIENT

DRUGS (4)
  1. BENICAR [Suspect]
     Active Substance: OLMESARTAN MEDOXOMIL
     Dosage: 20 MG, QD
     Dates: start: 20100622
  2. BENICAR HCT [Suspect]
     Active Substance: HYDROCHLOROTHIAZIDE\OLMESARTAN MEDOXOMIL
     Indication: HYPERTENSION
     Dosage: 40/25 MG HALF TABLET, QD
     Dates: start: 20060101, end: 20100622
  3. BENICAR [Suspect]
     Active Substance: OLMESARTAN MEDOXOMIL
     Indication: HYPERTENSION
     Dosage: 40 MG, QD
     Route: 048
     Dates: start: 20060101, end: 20140123
  4. BENICAR HCT [Suspect]
     Active Substance: HYDROCHLOROTHIAZIDE\OLMESARTAN MEDOXOMIL
     Dosage: 20/12.5 MG , QD
     Dates: start: 20070725

REACTIONS (15)
  - Chest discomfort [Recovered/Resolved]
  - Gastrooesophageal reflux disease [Unknown]
  - Pulmonary embolism [Unknown]
  - Sprue-like enteropathy [Recovering/Resolving]
  - Diverticulum [Unknown]
  - Diverticulitis [Unknown]
  - Dry mouth [Unknown]
  - Autoimmune colitis [Recovering/Resolving]
  - Lactose intolerance [Unknown]
  - Renal cyst [Unknown]
  - Ileus [Unknown]
  - Acute kidney injury [Unknown]
  - Hypovitaminosis [Unknown]
  - Large intestine polyp [Unknown]
  - Drug administration error [Unknown]

NARRATIVE: CASE EVENT DATE: 2007
